FAERS Safety Report 18291594 (Version 2)
Quarter: 2020Q4

REPORT INFORMATION
  Report Type: Spontaneous
  Country: FR (occurrence: FR)
  Receive Date: 20200921
  Receipt Date: 20201004
  Transmission Date: 20210113
  Serious: Yes (Other)
  Sender: FDA-Public Use
  Company Number: FR-TEVA-2020-FR-1828696

PATIENT
  Age: 23 Year
  Sex: Female

DRUGS (2)
  1. DOXY 100 MG, COMPRIME PELLICULE [Suspect]
     Active Substance: DOXYCYCLINE
     Indication: INFECTION
     Dosage: UNIT DOSE : 200 MG
     Route: 048
     Dates: start: 20200817, end: 20200818
  2. OMEPRAZOLE TEVA SANTE 20 MG, GELULE GASTRO-RESISTANTE [Suspect]
     Active Substance: OMEPRAZOLE
     Indication: GASTROOESOPHAGEAL REFLUX DISEASE
     Dosage: 20 MG
     Route: 048
     Dates: start: 20200817, end: 20200818

REACTIONS (3)
  - Lip swelling [Not Recovered/Not Resolved]
  - Aphthous ulcer [Not Recovered/Not Resolved]
  - Swollen tongue [Not Recovered/Not Resolved]

NARRATIVE: CASE EVENT DATE: 20200818
